FAERS Safety Report 11884266 (Version 1)
Quarter: 2015Q4

REPORT INFORMATION
  Report Type: Spontaneous
  Country: US (occurrence: None)
  Receive Date: 20151231
  Receipt Date: 20151231
  Transmission Date: 20160305
  Serious: Yes (Disabling)
  Sender: FDA-Public Use
  Company Number: None

PATIENT
  Age: 67 Year
  Sex: Female

DRUGS (12)
  1. OXYCODONE HCI [Concomitant]
  2. LISINOPRIL-HYDROCHLOROTHIAZIDE [Concomitant]
     Active Substance: HYDROCHLOROTHIAZIDE\LISINOPRIL
  3. CALCIUM 1000 + D [Concomitant]
  4. SERTRALINE HCI [Concomitant]
  5. GABAPENTIN. [Concomitant]
     Active Substance: GABAPENTIN
  6. ALENDRONATE SODIUM. [Concomitant]
     Active Substance: ALENDRONATE SODIUM
  7. REGLAN [Suspect]
     Active Substance: METOCLOPRAMIDE HYDROCHLORIDE
     Indication: GASTROOESOPHAGEAL REFLUX DISEASE
     Dates: start: 2004, end: 2012
  8. SIMVASTATIN. [Concomitant]
     Active Substance: SIMVASTATIN
  9. KLONOPIN [Concomitant]
     Active Substance: CLONAZEPAM
  10. TRAZODONE HCI [Concomitant]
  11. AMBIEN [Concomitant]
     Active Substance: ZOLPIDEM TARTRATE
  12. OMEPRAZOLE. [Concomitant]
     Active Substance: OMEPRAZOLE

REACTIONS (7)
  - Dyskinesia [None]
  - Dysphagia [None]
  - Nerve injury [None]
  - Fall [None]
  - Eating disorder [None]
  - Muscular weakness [None]
  - Wrist fracture [None]

NARRATIVE: CASE EVENT DATE: 2009
